FAERS Safety Report 6791141-2 (Version None)
Quarter: 2010Q2

REPORT INFORMATION
  Report Type: 
  Country: None (occurrence: None)
  Receive Date: 20100623
  Receipt Date: 20100623
  Transmission Date: 20101027
  Serious: Yes (Other)
  Sender: FDA-Public Use
  Company Number: None

PATIENT
  Sex: Female

DRUGS (2)
  1. LAMOTRIGINE [Suspect]
     Indication: BIPOLAR DISORDER
     Dosage: 400 MG QD PO
     Route: 048
     Dates: start: 20030101, end: 20090715
  2. LAMOTRIGINE [Suspect]
     Dosage: 50-400 MG QD PO
     Route: 048
     Dates: start: 20090804, end: 20100528

REACTIONS (13)
  - AGITATION [None]
  - COGNITIVE DISORDER [None]
  - DEPRESSION [None]
  - DIZZINESS [None]
  - ERYTHEMA MULTIFORME [None]
  - IRRITABILITY [None]
  - LEUKOCYTOCLASTIC VASCULITIS [None]
  - MANIA [None]
  - OEDEMA PERIPHERAL [None]
  - RASH MACULO-PAPULAR [None]
  - RASH PRURITIC [None]
  - SCAB [None]
  - SEDATION [None]
